FAERS Safety Report 11772912 (Version 1)
Quarter: 2015Q4

REPORT INFORMATION
  Report Type: Spontaneous
  Country: US (occurrence: US)
  Receive Date: 20151124
  Receipt Date: 20151124
  Transmission Date: 20160304
  Serious: Yes (Hospitalization, Other)
  Sender: FDA-Public Use
  Company Number: US-SHIRE-US201515105

PATIENT

DRUGS (2)
  1. GATTEX [Suspect]
     Active Substance: TEDUGLUTIDE\WATER
     Indication: SHORT-BOWEL SYNDROME
     Dosage: UNK
     Route: 058
  2. PARENTERAL [Concomitant]
     Indication: NUTRITIONAL SUPPLEMENTATION
     Dosage: UNK

REACTIONS (5)
  - Hypotension [Unknown]
  - Pyrexia [Unknown]
  - Malaise [Unknown]
  - Pneumonia [Unknown]
  - Sepsis [Unknown]

NARRATIVE: CASE EVENT DATE: 20151111
